FAERS Safety Report 11065167 (Version 2)
Quarter: 2015Q2

REPORT INFORMATION
  Report Type: Spontaneous
  Country: US (occurrence: US)
  Receive Date: 20150424
  Receipt Date: 20150525
  Transmission Date: 20150821
  Serious: No
  Sender: FDA-Public Use
  Company Number: US-JNJFOC-20140112199

PATIENT
  Age: 35 Year
  Sex: Female
  Weight: 63.5 kg

DRUGS (6)
  1. NUCYNTA ER [Suspect]
     Active Substance: TAPENTADOL HYDROCHLORIDE
     Indication: MIGRAINE
     Dosage: 150 MG TWICE A DAY
     Route: 048
     Dates: start: 20131219
  2. SOMA [Concomitant]
     Active Substance: CARISOPRODOL
     Indication: SLEEP DISORDER
     Route: 048
     Dates: start: 201112
  3. NUCYNTA ER [Suspect]
     Active Substance: TAPENTADOL HYDROCHLORIDE
     Indication: MIGRAINE
     Dosage: 50 MG TWICE A DAY
     Route: 048
     Dates: start: 201310, end: 20131219
  4. NUCYNTA ER [Suspect]
     Active Substance: TAPENTADOL HYDROCHLORIDE
     Indication: JOINT DISLOCATION
     Dosage: 50 MG TWICE A DAY
     Route: 048
     Dates: start: 201310, end: 20131219
  5. NUCYNTA ER [Suspect]
     Active Substance: TAPENTADOL HYDROCHLORIDE
     Indication: JOINT DISLOCATION
     Dosage: 150 MG TWICE A DAY
     Route: 048
     Dates: start: 20131219
  6. PERCOCET [Concomitant]
     Active Substance: ACETAMINOPHEN\OXYCODONE HYDROCHLORIDE
     Indication: PAIN
     Dosage: 10-325MG 4-5 TIMES A DAY
     Route: 048
     Dates: start: 2011

REACTIONS (2)
  - Drug dose omission [Unknown]
  - Inadequate analgesia [Unknown]

NARRATIVE: CASE EVENT DATE: 201310
